FAERS Safety Report 4296073-X (Version None)
Quarter: 2004Q1

REPORT INFORMATION
  Report Type: 
  Country: None (occurrence: None)
  Receive Date: 20040217
  Receipt Date: 20031106
  Transmission Date: 20041129
  Serious: Yes (Death, Life-Threatening, Hospitalization)
  Sender: FDA-Public Use
  Company Number: 200314206FR

PATIENT
  Age: 73 Year
  Sex: Male
  Weight: 58 kg

DRUGS (11)
  1. TAXOTERE [Suspect]
     Indication: NON-SMALL CELL LUNG CANCER
     Route: 042
     Dates: start: 20031024, end: 20031024
  2. GEMZAR [Suspect]
     Indication: NON-SMALL CELL LUNG CANCER
     Route: 042
     Dates: start: 20031024, end: 20031024
  3. SOLUPRED [Concomitant]
     Dates: start: 20031023, end: 20031024
  4. GLUCOPHAGE [Concomitant]
  5. LOXEN [Concomitant]
  6. NOVOMIX [Concomitant]
     Indication: DIABETES MELLITUS
     Dosage: DOSE: 22-18; DOSE UNIT: UNITS
  7. FORLAX [Concomitant]
  8. TOPALGIC [Concomitant]
  9. TRAVATAN [Concomitant]
  10. COSOPT [Concomitant]
  11. SILOMAT [Concomitant]
     Dosage: DOSE: 1-1-2; DOSE UNIT: UNITS

REACTIONS (11)
  - ACTIVATED PARTIAL THROMBOPLASTIN TIME PROLONGED [None]
  - CEREBROVASCULAR ACCIDENT [None]
  - CHEST X-RAY ABNORMAL [None]
  - HAEMATEMESIS [None]
  - HEMIPLEGIA [None]
  - HYPOXIA [None]
  - ISCHAEMIC STROKE [None]
  - MALIGNANT NEOPLASM PROGRESSION [None]
  - NON-SMALL CELL LUNG CANCER [None]
  - PANCYTOPENIA [None]
  - RECTAL HAEMORRHAGE [None]
